FAERS Safety Report 16258492 (Version 4)
Quarter: 2019Q3

REPORT INFORMATION
  Report Type: Spontaneous
  Country: FR (occurrence: FR)
  Receive Date: 20190430
  Receipt Date: 20190805
  Transmission Date: 20191004
  Serious: Yes (Hospitalization, Other)
  Sender: FDA-Public Use
  Company Number: FR-GILEAD-2019-0404994

PATIENT
  Age: 57 Year
  Sex: Female
  Weight: 47.5 kg

DRUGS (15)
  1. YESCARTA [Suspect]
     Active Substance: AXICABTAGENE CILOLEUCEL
     Indication: DIFFUSE LARGE B-CELL LYMPHOMA
     Route: 041
     Dates: start: 20190410
  2. KEPPRA [Concomitant]
     Active Substance: LEVETIRACETAM
  3. XANAX [Concomitant]
     Active Substance: ALPRAZOLAM
  4. BINOCRIT [Concomitant]
     Active Substance: ERYTHROPOIETIN
  5. FLUDARABINE [Concomitant]
     Active Substance: FLUDARABINE PHOSPHATE
     Indication: BONE MARROW CONDITIONING REGIMEN
     Dosage: UNK
     Dates: start: 20190405, end: 20190407
  6. JANUVIA [Concomitant]
     Active Substance: SITAGLIPTIN PHOSPHATE
  7. UMULINE [Concomitant]
     Active Substance: INSULIN HUMAN
  8. LOVENOX HP [Concomitant]
     Active Substance: ENOXAPARIN SODIUM
  9. ELIQUIS [Concomitant]
     Active Substance: APIXABAN
  10. BACTRIM [Concomitant]
     Active Substance: SULFAMETHOXAZOLE\TRIMETHOPRIM
  11. LEVOTHYROX [Concomitant]
     Active Substance: LEVOTHYROXINE
  12. LEDERFOLINE [Concomitant]
     Active Substance: LEUCOVORIN CALCIUM
  13. CYCLOPHOSPHAMIDE. [Concomitant]
     Active Substance: CYCLOPHOSPHAMIDE
     Indication: BONE MARROW CONDITIONING REGIMEN
  14. METFORMIN [Concomitant]
     Active Substance: METFORMIN HYDROCHLORIDE
  15. FLECAINE [Concomitant]
     Active Substance: FLECAINIDE

REACTIONS (8)
  - Dysaesthesia [Recovered/Resolved]
  - Cerebellar syndrome [Recovered/Resolved]
  - Neurotoxicity [Recovered/Resolved]
  - Cholestasis [Recovered/Resolved]
  - Hepatocellular injury [Recovered/Resolved]
  - Disorientation [Recovered/Resolved]
  - Cytokine release syndrome [Recovered/Resolved]
  - Confusional state [Recovered/Resolved]

NARRATIVE: CASE EVENT DATE: 20190411
